FAERS Safety Report 16270532 (Version 1)
Quarter: 2019Q2

REPORT INFORMATION
  Report Type: Spontaneous
  Country: US (occurrence: US)
  Receive Date: 20190503
  Receipt Date: 20190503
  Transmission Date: 20190711
  Serious: Yes (Hospitalization, Other)
  Sender: FDA-Public Use
  Company Number: US-SUNOVION-2019SUN001761

PATIENT
  Sex: Female
  Weight: 52.15 kg

DRUGS (2)
  1. LATUDA [Suspect]
     Active Substance: LURASIDONE HYDROCHLORIDE
     Indication: MAJOR DEPRESSION
     Dosage: 120 MG, QD
     Route: 048
     Dates: start: 201901
  2. LATUDA [Suspect]
     Active Substance: LURASIDONE HYDROCHLORIDE
     Dosage: UNK
     Route: 048
     Dates: start: 2011

REACTIONS (6)
  - Off label use [Unknown]
  - Psychotic disorder [Unknown]
  - Intestinal obstruction [Not Recovered/Not Resolved]
  - Product administration error [Unknown]
  - Mental disorder [Unknown]
  - Product dose omission [Unknown]
